FAERS Safety Report 6068256-X (Version None)
Quarter: 2009Q1

REPORT INFORMATION
  Report Type: 
  Country: None (occurrence: None)
  Receive Date: 20090206
  Receipt Date: 20090126
  Transmission Date: 20090719
  Serious: Yes (Other)
  Sender: FDA-Public Use
  Company Number: PHHY2009RO02879

PATIENT
  Sex: Female

DRUGS (2)
  1. ACLASTA [Suspect]
     Indication: OSTEOPOROSIS
     Dosage: 5 MG, UNK
  2. SIOFOR [Concomitant]
     Dosage: 2 TABLETS/DAY

REACTIONS (4)
  - ASTHENIA [None]
  - GASTROINTESTINAL HYPERMOTILITY [None]
  - NAUSEA [None]
  - VOMITING [None]
